FAERS Safety Report 7281447-5 (Version None)
Quarter: 2011Q1

REPORT INFORMATION
  Report Type: 
  Country: None (occurrence: None)
  Receive Date: 20110208
  Receipt Date: 20110127
  Transmission Date: 20110831
  Serious: Yes (Hospitalization)
  Sender: FDA-Public Use
  Company Number: US-ASTRAZENECA-2011SE04731

PATIENT
  Age: 47 Year
  Sex: Female
  Weight: 113.4 kg

DRUGS (10)
  1. DEPAKOTE [Concomitant]
     Route: 048
  2. UFLEXXA [Concomitant]
     Indication: ARTHRALGIA
     Dosage: AS REQUIRED
  3. ACTZ [Concomitant]
     Route: 048
  4. DEPAKOTE [Concomitant]
     Indication: EPILEPSY
     Route: 048
  5. DEPAKOTE [Concomitant]
     Route: 048
  6. NORVASC [Concomitant]
     Route: 048
  7. ADVAIR [Concomitant]
     Indication: ASTHMA
     Dosage: 250/50 ONE PUFF BID
     Route: 055
  8. CRESTOR [Suspect]
     Indication: HYPERCHOLESTEROLAEMIA
     Route: 048
     Dates: start: 20040101
  9. VALTERNA [Concomitant]
     Dosage: 300/320MG DAILY
     Route: 048
  10. DEPAKOTE [Concomitant]
     Indication: BIPOLAR DISORDER
     Route: 048

REACTIONS (5)
  - MYOCARDIAL INFARCTION [None]
  - CEREBROVASCULAR ACCIDENT [None]
  - ARTHRALGIA [None]
  - EPILEPTIC AURA [None]
  - VIRAL CARDIOMYOPATHY [None]
